FAERS Safety Report 18511157 (Version 2)
Quarter: 2021Q3

REPORT INFORMATION
  Report Type: Spontaneous
  Country: US (occurrence: US)
  Receive Date: 20201117
  Receipt Date: 20210716
  Transmission Date: 20211014
  Serious: Yes (Other)
  Sender: FDA-Public Use
  Company Number: US-STRIDES ARCOLAB LIMITED-2020SP014115

PATIENT
  Age: 56 Year
  Sex: Male

DRUGS (2)
  1. RANITIDINE. [Suspect]
     Active Substance: RANITIDINE
     Dosage: UNK (RANITIDINE); DAILY
     Route: 048
     Dates: start: 199804, end: 202004
  2. RANITIDINE. [Suspect]
     Active Substance: RANITIDINE
     Indication: GASTROOESOPHAGEAL REFLUX DISEASE
     Dosage: UNK (ZANTAC); DAILY
     Route: 048
     Dates: start: 199804, end: 202004

REACTIONS (4)
  - Non-Hodgkin^s lymphoma [Unknown]
  - Chronic myeloid leukaemia [Unknown]
  - Bladder cancer [Unknown]
  - Haematopoietic neoplasm [Unknown]

NARRATIVE: CASE EVENT DATE: 20110331
